FAERS Safety Report 7434365-3 (Version None)
Quarter: 2011Q2

REPORT INFORMATION
  Report Type: 
  Country: None (occurrence: None)
  Receive Date: 20110425
  Receipt Date: 20110412
  Transmission Date: 20111010
  Serious: Yes (Other)
  Sender: FDA-Public Use
  Company Number: US-JNJFOC-20110207276

PATIENT
  Sex: Female
  Weight: 115.67 kg

DRUGS (20)
  1. FLONASE [Concomitant]
     Indication: ASTHMA
     Dosage: ORAL INHALATION, 2 PUFFS TWICE DAILY
     Route: 055
  2. LEXAPRO [Concomitant]
     Indication: DEPRESSION
     Route: 048
  3. VITAMIN D [Concomitant]
     Indication: NUTRITIONAL SUPPORT
     Route: 048
  4. WELLBUTRIN [Concomitant]
     Indication: OBSESSIVE-COMPULSIVE DISORDER
     Route: 048
  5. OMEPRAZOLE [Concomitant]
     Indication: GASTROOESOPHAGEAL REFLUX DISEASE
     Route: 048
  6. SINGULAIR [Concomitant]
     Indication: ASTHMA
     Route: 048
  7. METANX [Concomitant]
     Indication: NUTRITIONAL SUPPORT
     Route: 048
  8. SULFASALAZINE [Concomitant]
     Indication: RHEUMATOID ARTHRITIS
     Route: 048
  9. WELLBUTRIN [Concomitant]
     Indication: DEPRESSION
     Route: 048
  10. ALPRAZOLAM [Concomitant]
     Indication: ANXIETY
     Route: 048
  11. AMBIEN CR [Concomitant]
     Indication: INSOMNIA
     Route: 048
  12. REMICADE [Suspect]
     Indication: RHEUMATOID ARTHRITIS
     Route: 042
  13. AMLODIPINE [Concomitant]
     Indication: HYPERTENSION
     Route: 048
  14. FLEXERIL [Concomitant]
     Indication: MUSCLE SPASMS
     Route: 048
  15. LEXAPRO [Concomitant]
     Indication: OBSESSIVE-COMPULSIVE DISORDER
     Route: 048
  16. BENICAR [Concomitant]
     Indication: HYPERTENSION
     Route: 048
  17. ZANTAC [Concomitant]
     Indication: GASTROOESOPHAGEAL REFLUX DISEASE
     Route: 048
  18. SYMBICORT [Concomitant]
     Indication: ASTHMA
     Dosage: ORAL INHALANT
     Route: 055
  19. PROAIR HFA [Concomitant]
     Indication: ASTHMA
     Dosage: ORAL INHALATION, 2 PUFFS EVERY 4-6 HOURS AS NEEDED.
     Route: 055
  20. DICYCLOMINE [Concomitant]
     Indication: DIARRHOEA
     Route: 048

REACTIONS (1)
  - PAIN IN EXTREMITY [None]
